FAERS Safety Report 12925662 (Version 2)
Quarter: 2018Q2

REPORT INFORMATION
  Report Type: Spontaneous
  Country: US (occurrence: US)
  Receive Date: 20161108
  Receipt Date: 20180430
  Transmission Date: 20180711
  Serious: No
  Sender: FDA-Public Use
  Company Number: US-SA-2016SA193907

PATIENT
  Age: 52 Year
  Sex: Female

DRUGS (2)
  1. ALIROCUMAB PREFILLED PEN [Suspect]
     Active Substance: ALIROCUMAB
     Indication: HYPERLIPIDAEMIA
     Dates: start: 2016, end: 20180126
  2. PRALUENT [Suspect]
     Active Substance: ALIROCUMAB
     Indication: HYPERLIPIDAEMIA
     Route: 065
     Dates: start: 2016, end: 20180126

REACTIONS (5)
  - Muscle spasms [Unknown]
  - Abdominal distension [Unknown]
  - Memory impairment [Unknown]
  - Feeling abnormal [Unknown]
  - Paraesthesia [Unknown]
